FAERS Safety Report 6668915-1 (Version None)
Quarter: 2010Q2

REPORT INFORMATION
  Report Type: 
  Country: None (occurrence: None)
  Receive Date: 20100401
  Receipt Date: 20100317
  Transmission Date: 20101027
  Serious: Yes (Hospitalization)
  Sender: FDA-Public Use
  Company Number: DSA_42852_2010

PATIENT
  Age: 64 Year
  Sex: Male

DRUGS (9)
  1. MONO-TILDIEM (MONO-TILDIEM LP - DILTIAZEM HYDROCHLORIDE) (NOT SPECIFIE [Suspect]
     Indication: DRUG USE FOR UNKNOWN INDICATION
     Dosage: (200 MG QD ORAL)
     Route: 048
     Dates: end: 20100119
  2. SUNITINIB (SUNITINIB) [Suspect]
     Indication: DRUG USE FOR UNKNOWN INDICATION
     Dosage: (50 MG QD ORAL), (50 MG QD ORAL)
     Route: 048
     Dates: start: 20091120, end: 20090101
  3. SUNITINIB (SUNITINIB) [Suspect]
     Indication: DRUG USE FOR UNKNOWN INDICATION
     Dosage: (50 MG QD ORAL), (50 MG QD ORAL)
     Route: 048
     Dates: start: 20091201, end: 20100101
  4. LIORESAL [Suspect]
     Indication: DRUG USE FOR UNKNOWN INDICATION
     Dosage: (DF ORAL)
     Route: 048
     Dates: start: 20100113, end: 20100119
  5. ASPIRIN [Concomitant]
  6. ZOCOR [Concomitant]
  7. INIPOMP /01263201/ [Concomitant]
  8. ALDACTONE [Concomitant]
  9. PARACETAMOL [Concomitant]

REACTIONS (6)
  - CORONARY ARTERY DISEASE [None]
  - NECROSIS [None]
  - SENSE OF OPPRESSION [None]
  - SYNCOPE [None]
  - TACHYCARDIA [None]
  - VENTRICULAR TACHYCARDIA [None]
